FAERS Safety Report 9485101 (Version 1)
Quarter: 2013Q3

REPORT INFORMATION
  Report Type: Spontaneous
  Country: US (occurrence: US)
  Receive Date: 20130828
  Receipt Date: 20130828
  Transmission Date: 20140515
  Serious: No
  Sender: FDA-Public Use
  Company Number: US-ABBOTT-13P-163-1123447-00

PATIENT
  Age: 66 Year
  Sex: Male
  Weight: 92.16 kg

DRUGS (5)
  1. ANDROGEL [Suspect]
     Indication: BLOOD TESTOSTERONE DECREASED
     Dosage: ONE PUMP TO EACH SHOULDER DAILY
     Route: 061
     Dates: start: 20121119
  2. ANDROGEL [Suspect]
     Indication: FATIGUE
  3. HYDROCHLOROTHIAZIDE [Concomitant]
     Indication: FLUID RETENTION
  4. TEGRETOL [Concomitant]
     Indication: CONVULSION
  5. TEGRETOL [Concomitant]
     Indication: BRAIN NEOPLASM

REACTIONS (5)
  - Libido increased [Not Recovered/Not Resolved]
  - Pain in extremity [Not Recovered/Not Resolved]
  - Neoplasm [Not Recovered/Not Resolved]
  - Ejaculation disorder [Not Recovered/Not Resolved]
  - Erectile dysfunction [Not Recovered/Not Resolved]
